FAERS Safety Report 10049868 (Version 1)
Quarter: 2014Q1

REPORT INFORMATION
  Report Type: Spontaneous
  Country: US (occurrence: None)
  Receive Date: 20140331
  Receipt Date: 20140331
  Transmission Date: 20141002
  Serious: Yes (Other)
  Sender: FDA-Public Use
  Company Number: None

PATIENT
  Age: 60 Year
  Sex: Male
  Weight: 102 kg

DRUGS (13)
  1. VANCOMYCIN [Suspect]
     Indication: CELLULITIS
     Dates: start: 20140308, end: 20140309
  2. ZOSYN [Suspect]
     Indication: CELLULITIS
     Dates: start: 20140308, end: 20140321
  3. SODIUM CHLORIDE [Concomitant]
  4. BOLUS [Concomitant]
  5. MORPHINE INJ [Concomitant]
  6. INSULIN REGULAR [Concomitant]
  7. NOVOLIN R [Concomitant]
  8. ATORVASTATIN [Concomitant]
  9. CARVEDILOL [Concomitant]
  10. HEPARIN [Concomitant]
  11. NORCO [Concomitant]
  12. LEVEMIR [Concomitant]
  13. HUMALOG [Concomitant]

REACTIONS (2)
  - Renal failure acute [None]
  - Product substitution issue [None]
